FAERS Safety Report 4718201-1 (Version None)
Quarter: 2005Q3

REPORT INFORMATION
  Report Type: 
  Country: None (occurrence: None)
  Receive Date: 20050720
  Receipt Date: 20050708
  Transmission Date: 20060218
  Serious: Yes (Other)
  Sender: FDA-Public Use
  Company Number: PHBS2005NL09912

PATIENT
  Age: 31 Year
  Sex: Male

DRUGS (4)
  1. CARBAMAZEPINE [Suspect]
     Indication: CONVULSION
     Route: 065
  2. PHENOBARBITAL [Suspect]
     Indication: CONVULSION
  3. PHENYTOIN [Suspect]
     Indication: CONVULSION
  4. VALPROIC ACID [Suspect]
     Indication: CONVULSION

REACTIONS (6)
  - BACK PAIN [None]
  - HYDROXYPROLINE INCREASED [None]
  - OSTEOPENIA [None]
  - OSTEOPOROSIS [None]
  - SPINAL COMPRESSION FRACTURE [None]
  - URINE CALCIUM INCREASED [None]
